FAERS Safety Report 17498317 (Version 3)
Quarter: 2022Q4

REPORT INFORMATION
  Report Type: Report from Study
  Country: US (occurrence: US)
  Receive Date: 20200304
  Receipt Date: 20221116
  Transmission Date: 20230113
  Serious: No
  Sender: FDA-Public Use
  Company Number: None

PATIENT
  Sex: Female

DRUGS (3)
  1. MAYZENT [Suspect]
     Active Substance: SIPONIMOD
     Indication: Relapsing-remitting multiple sclerosis
     Dosage: 2 MG, QD
     Route: 048
     Dates: start: 20200202
  2. MAYZENT [Suspect]
     Active Substance: SIPONIMOD
     Indication: Clinically isolated syndrome
     Dosage: 2 MG, QD
     Route: 048
     Dates: start: 20200207
  3. MAYZENT [Suspect]
     Active Substance: SIPONIMOD
     Indication: Secondary progressive multiple sclerosis

REACTIONS (6)
  - Dyspnoea exertional [Unknown]
  - Somnolence [Recovering/Resolving]
  - Depression [Unknown]
  - Memory impairment [Unknown]
  - Condition aggravated [Recovering/Resolving]
  - Dizziness [Recovering/Resolving]
